FAERS Safety Report 4807590-5 (Version None)
Quarter: 2005Q4

REPORT INFORMATION
  Report Type: 
  Country: None (occurrence: None)
  Receive Date: 20051020
  Receipt Date: 20051011
  Transmission Date: 20060501
  Serious: Yes (Death)
  Sender: FDA-Public Use
  Company Number: US-2005-019881

PATIENT
  Age: 48 Year
  Sex: Male
  Weight: 88.4 kg

DRUGS (4)
  1. BETASERON [Suspect]
     Indication: SECONDARY PROGRESSIVE MULTIPLE SCLEROSIS
     Dosage: 8 MIU, EVERY 2 D, SUBCUTANEOUS
     Route: 058
     Dates: start: 20031111, end: 20050913
  2. PAXIL [Concomitant]
  3. LIPITOR [Concomitant]
  4. NU DUO [Concomitant]

REACTIONS (3)
  - CONDITION AGGRAVATED [None]
  - PROGRESSIVE MULTIPLE SCLEROSIS [None]
  - RESPIRATORY ARREST [None]
